FAERS Safety Report 5337789-3 (Version None)
Quarter: 2007Q2

REPORT INFORMATION
  Report Type: 
  Country: None (occurrence: None)
  Receive Date: 20070308
  Receipt Date: 20061218
  Transmission Date: 20071010
  Serious: No
  Sender: FDA-Public Use
  Company Number: 2006-BP-14688BP

PATIENT
  Sex: Female

DRUGS (3)
  1. SPIRIVA [Suspect]
     Indication: BRONCHITIS
     Dosage: 18 MCG (18 MCG,1 IN 1 D) IH
     Route: 055
     Dates: start: 20051201
  2. LOZ (ALL OTHER THERAPEUTIC PRODUCTS) [Concomitant]
  3. IRON (IRON) [Concomitant]

REACTIONS (3)
  - RASH [None]
  - RASH PRURITIC [None]
  - SKIN REACTION [None]
